FAERS Safety Report 11214384 (Version 1)
Quarter: 2015Q2

REPORT INFORMATION
  Report Type: Spontaneous
  Country: US (occurrence: US)
  Receive Date: 20150624
  Receipt Date: 20150624
  Transmission Date: 20150821
  Serious: Yes (Other)
  Sender: FDA-Public Use
  Company Number: US-AUROBINDO-AUR-APL-2015-05205

PATIENT
  Sex: Female
  Weight: 102 kg

DRUGS (11)
  1. GABAPENTIN CAPSULES 400 MG [Interacting]
     Active Substance: GABAPENTIN
     Indication: BIPOLAR DISORDER
  2. CYMBALTA [Interacting]
     Active Substance: DULOXETINE HYDROCHLORIDE
     Indication: PRODUCT USED FOR UNKNOWN INDICATION
     Route: 065
  3. OXYCODONE AND ACETAMINOPHEN TABLETS USP, 10 MG/325 MG [Interacting]
     Active Substance: ACETAMINOPHEN\OXYCODONE HYDROCHLORIDE
     Indication: BACK PAIN
     Dosage: 1 DF, FOUR TIMES/DAY
     Route: 065
  4. ZOLPIDEM TARTRATE TABLETS 10 MG [Interacting]
     Active Substance: ZOLPIDEM TARTRATE
     Indication: INSOMNIA
     Dosage: 2 DF, AT BED TIME
     Route: 065
  5. GABAPENTIN CAPSULES 400 MG [Interacting]
     Active Substance: GABAPENTIN
     Indication: ANXIETY
     Dosage: 2 DF, 3 TIMES A DAY
     Route: 065
  6. RELPAX [Interacting]
     Active Substance: ELETRIPTAN HYDROBROMIDE
     Indication: PRODUCT USED FOR UNKNOWN INDICATION
     Route: 065
  7. GABAPENTIN CAPSULES 400 MG [Interacting]
     Active Substance: GABAPENTIN
     Indication: BORDERLINE PERSONALITY DISORDER
  8. ADDERALL [Interacting]
     Active Substance: AMPHETAMINE ASPARTATE\AMPHETAMINE SULFATE\DEXTROAMPHETAMINE SACCHARATE\DEXTROAMPHETAMINE SULFATE
     Indication: BIPOLAR DISORDER
     Dosage: 1 DF, TWO TIMES A DAY
     Route: 065
  9. CHANTIX [Interacting]
     Active Substance: VARENICLINE TARTRATE
     Indication: SMOKING CESSATION THERAPY
     Dosage: 1 MG, TWO TIMES A DAY
     Route: 048
  10. CYCLOBENZAPRINE [Suspect]
     Active Substance: CYCLOBENZAPRINE
     Indication: BACK PAIN
     Dosage: 1 DF, AT BED TIME
     Route: 065
  11. METOPROLOL FILM-COATED TABLET [Interacting]
     Active Substance: METOPROLOL
     Indication: BLOOD PRESSURE
     Dosage: 1 MG, UNK
     Route: 065

REACTIONS (7)
  - Amnesia [Unknown]
  - Abnormal behaviour [Unknown]
  - Drug interaction [Unknown]
  - Depressed level of consciousness [Unknown]
  - Shoplifting [Unknown]
  - Toxicity to various agents [Unknown]
  - Impaired driving ability [Unknown]
